FAERS Safety Report 10172810 (Version 1)
Quarter: 2014Q2

REPORT INFORMATION
  Report Type: Spontaneous
  Country: US (occurrence: US)
  Receive Date: 20140515
  Receipt Date: 20140515
  Transmission Date: 20141212
  Serious: Yes (Other)
  Sender: FDA-Public Use
  Company Number: US-AMGEN-USASP2014034319

PATIENT
  Age: 54 Year
  Sex: Female

DRUGS (1)
  1. PROLIA [Suspect]
     Indication: OSTEOPOROSIS POSTMENOPAUSAL
     Dosage: UNK UNK, Q6MO
     Route: 065
     Dates: start: 201307

REACTIONS (12)
  - Mobility decreased [Unknown]
  - Pain [Unknown]
  - Feeling abnormal [Unknown]
  - Blood cholesterol increased [Unknown]
  - Urinary tract infection [Unknown]
  - Dizziness [Unknown]
  - Hot flush [Unknown]
  - Night sweats [Unknown]
  - Fall [Unknown]
  - Balance disorder [Unknown]
  - Hypothyroidism [Unknown]
  - Migraine [Unknown]
